FAERS Safety Report 8232643-1 (Version None)
Quarter: 2012Q1

REPORT INFORMATION
  Report Type: 
  Country: None (occurrence: None)
  Receive Date: 20120323
  Receipt Date: 20120321
  Transmission Date: 20120608
  Serious: Yes (Life-Threatening)
  Sender: FDA-Public Use
  Company Number: DE-B.I. PHARMACEUTICALS,INC./RIDGEFIELD-2012-DE-00841DE

PATIENT
  Sex: Female
  Weight: 125 kg

DRUGS (4)
  1. BISOPROLOL FUMARATE [Concomitant]
     Indication: HYPERTENSION
     Dosage: 10 MG
  2. VALSARTAN COMP [Concomitant]
     Indication: HYPERTENSION
     Dosage: 1 ANZ
  3. PRADAXA [Suspect]
     Indication: ATRIAL FIBRILLATION
     Dosage: 220 MG
     Dates: start: 20111201, end: 20120226
  4. LERCANIDIPIN [Concomitant]
     Indication: HYPERTENSION
     Dosage: 20 MG

REACTIONS (2)
  - INTESTINAL ISCHAEMIA [None]
  - GASTROINTESTINAL NECROSIS [None]
